FAERS Safety Report 10679996 (Version 3)
Quarter: 2015Q2

REPORT INFORMATION
  Report Type: Report from Study
  Country: FR (occurrence: FR)
  Receive Date: 20141229
  Receipt Date: 20150409
  Transmission Date: 20150821
  Serious: Yes (Death, Other)
  Sender: FDA-Public Use
  Company Number: FR-EXELIXIS-XL18414005032

PATIENT
  Age: 62 Year
  Sex: Female
  Weight: 62 kg

DRUGS (16)
  1. LEVOTHYROX [Concomitant]
     Active Substance: LEVOTHYROXINE
  2. TOCO [Concomitant]
     Active Substance: UNSPECIFIED INGREDIENT
  3. MOTILIUM [Concomitant]
     Active Substance: DOMPERIDONE
  4. DAFALGAN CODEINE [Concomitant]
     Active Substance: ACETAMINOPHEN\CODEINE PHOSPHATE
  5. ULCAR [Concomitant]
     Active Substance: SUCRALFATE
  6. GAVISCON [Concomitant]
     Active Substance: ALUMINUM HYDROXIDE\MAGNESIUM CARBONATE
  7. ROCEPHINE [Concomitant]
     Active Substance: CEFTRIAXONE SODIUM
  8. CEREAT DE GALIEN [Concomitant]
  9. VOGALENE [Concomitant]
     Active Substance: METOPIMAZINE
  10. CARAFATE [Concomitant]
     Active Substance: SUCRALFATE
  11. XL184 [Suspect]
     Active Substance: CABOZANTINIB
     Indication: HEPATOCELLULAR CARCINOMA
     Dosage: 60 MG, QD
     Route: 048
     Dates: start: 20140909, end: 20141215
  12. METFORMIN [Concomitant]
     Active Substance: METFORMIN HYDROCHLORIDE
  13. GENTAMICINE [Concomitant]
     Active Substance: GENTAMICIN
  14. ESOMEPRAZOLE [Concomitant]
     Active Substance: ESOMEPRAZOLE
  15. OXYCONTIN [Concomitant]
     Active Substance: OXYCODONE HYDROCHLORIDE
  16. OXYNORMORO [Concomitant]
     Active Substance: OXYCODONE

REACTIONS (1)
  - Pneumomediastinum [Fatal]

NARRATIVE: CASE EVENT DATE: 20141215
